FAERS Safety Report 8128555-4 (Version None)
Quarter: 2012Q1

REPORT INFORMATION
  Report Type: 
  Country: None (occurrence: None)
  Receive Date: 20120210
  Receipt Date: 20111206
  Transmission Date: 20120608
  Serious: Yes (Disabling)
  Sender: FDA-Public Use
  Company Number: US-BRISTOL-MYERS SQUIBB COMPANY-16273005

PATIENT
  Age: 66 Year
  Sex: Female

DRUGS (5)
  1. OXYCODONE HCL [Concomitant]
     Indication: PAIN
     Dosage: AGAIN AT NIGHT IF STILL IN PAIN.
  2. PREDNISONE TAB [Concomitant]
  3. METHOTREXATE [Concomitant]
  4. PLAVIX [Concomitant]
  5. ORENCIA [Suspect]
     Indication: RHEUMATOID ARTHRITIS
     Route: 042
     Dates: start: 20110101

REACTIONS (1)
  - ARTHRITIS [None]
